FAERS Safety Report 21688787 (Version 1)
Quarter: 2022Q4

REPORT INFORMATION
  Report Type: Spontaneous
  Country: US (occurrence: US)
  Receive Date: 20221206
  Receipt Date: 20221206
  Transmission Date: 20230113
  Serious: Yes (Other)
  Sender: FDA-Public Use
  Company Number: US-009507513-2212USA000434

PATIENT
  Age: 28 Year
  Sex: Male

DRUGS (1)
  1. KEYTRUDA [Suspect]
     Active Substance: PEMBROLIZUMAB
     Indication: Schwannoma
     Dosage: UNK, EVERY THREE WEEKS

REACTIONS (2)
  - Tumour necrosis [Unknown]
  - Therapeutic response unexpected [Unknown]
